FAERS Safety Report 11604184 (Version 1)
Quarter: 2015Q4

REPORT INFORMATION
  Report Type: Spontaneous
  Country: FR (occurrence: FR)
  Receive Date: 20151007
  Receipt Date: 20151007
  Transmission Date: 20160304
  Serious: Yes (Hospitalization)
  Sender: FDA-Public Use
  Company Number: FR-WARNER CHILCOTT, LLC-1042677

PATIENT
  Age: 57 Year
  Sex: Female

DRUGS (7)
  1. MONO TILDIEM [Suspect]
     Active Substance: DILTIAZEM HYDROCHLORIDE
     Route: 065
     Dates: start: 20010609, end: 20011231
  2. FONZYLANE [Concomitant]
     Active Substance: BUFLOMEDIL
  3. SOTALEX [Concomitant]
     Active Substance: SOTALOL
  4. ACTONEL [Suspect]
     Active Substance: RISEDRONATE SODIUM
     Route: 048
     Dates: start: 20010501, end: 20011101
  5. DIOVENOR [Concomitant]
     Active Substance: DIOSMIN
  6. PRAXILENE [Suspect]
     Active Substance: NAFRONYL
     Route: 065
     Dates: start: 20010601, end: 20011231
  7. TANAKAN [Concomitant]
     Active Substance: GINKGO

REACTIONS (2)
  - Hepatocellular injury [Unknown]
  - Cholestasis [Unknown]
